FAERS Safety Report 8199199-3 (Version None)
Quarter: 2012Q1

REPORT INFORMATION
  Report Type: 
  Country: None (occurrence: None)
  Receive Date: 20120306
  Receipt Date: 20120224
  Transmission Date: 20120608
  Serious: Yes (Hospitalization)
  Sender: FDA-Public Use
  Company Number: AUR-APL-2012-01208

PATIENT
  Age: 51 Year
  Sex: Male
  Weight: 74.38 kg

DRUGS (5)
  1. SERTRALINE HYDROCHLORIDE [Suspect]
     Indication: MAJOR DEPRESSION
     Dosage: 200 MG (200 MG, 1 IN 1 D), ORAL
     Route: 048
     Dates: start: 20120120, end: 20120223
  2. PLAVIX [Concomitant]
  3. LISINOPRIL [Concomitant]
  4. OLANZAPINE [Suspect]
     Indication: MAJOR DEPRESSION
     Dosage: 20 MG (20 MG, 1 IN 1 D), ORAL
     Route: 048
     Dates: start: 20120120, end: 20120223
  5. ATORVASTATIN [Concomitant]

REACTIONS (3)
  - SUICIDAL IDEATION [None]
  - DELUSION [None]
  - FEELING GUILTY [None]
